FAERS Safety Report 22054446 (Version 4)
Quarter: 2023Q2

REPORT INFORMATION
  Report Type: Report from Study
  Country: US (occurrence: US)
  Receive Date: 20230302
  Receipt Date: 20230518
  Transmission Date: 20230721
  Serious: Yes (Other)
  Sender: FDA-Public Use
  Company Number: US-JAZZ PHARMACEUTICALS-2023-US-004404

PATIENT
  Sex: Female

DRUGS (7)
  1. XYREM [Suspect]
     Active Substance: SODIUM OXYBATE
     Indication: Narcolepsy
     Dosage: UNK
     Dates: end: 2021
  2. XYREM [Suspect]
     Active Substance: SODIUM OXYBATE
     Indication: Cataplexy
  3. XYREM [Suspect]
     Active Substance: SODIUM OXYBATE
     Indication: Somnolence
  4. LYRICA [Suspect]
     Active Substance: PREGABALIN
     Indication: Product used for unknown indication
     Dosage: UNK
  5. CLONAZEPAM [Concomitant]
     Active Substance: CLONAZEPAM
     Indication: Product used for unknown indication
     Dosage: UNK
     Dates: start: 20140422
  6. VYVANSE [Concomitant]
     Active Substance: LISDEXAMFETAMINE DIMESYLATE
     Indication: Product used for unknown indication
     Dosage: UNK
     Dates: start: 20140422
  7. BUSPIRONE HCL [Concomitant]
     Active Substance: BUSPIRONE HYDROCHLORIDE
     Indication: Product used for unknown indication
     Dosage: UNK
     Dates: start: 20190101

REACTIONS (24)
  - Neuropathy peripheral [Unknown]
  - Cataract [Unknown]
  - Disability [Unknown]
  - Seizure [Not Recovered/Not Resolved]
  - Eye haemorrhage [Unknown]
  - Obesity [Unknown]
  - Spinal osteoarthritis [Unknown]
  - Muscle atrophy [Unknown]
  - Anaemia [Recovered/Resolved]
  - Vitamin D deficiency [Recovered/Resolved]
  - Osteoarthritis [Unknown]
  - Epiretinal membrane [Unknown]
  - Vitamin B12 deficiency [Unknown]
  - Sciatica [Unknown]
  - Rhinitis allergic [Unknown]
  - Arthritis [Unknown]
  - Hypertension [Unknown]
  - Drug hypersensitivity [Unknown]
  - Constipation [Unknown]
  - Anger [Unknown]
  - Mitral valve prolapse [Unknown]
  - Product dose omission issue [Unknown]
  - Somnambulism [Unknown]
  - Sleep-related eating disorder [Unknown]
